FAERS Safety Report 25343172 (Version 1)
Quarter: 2025Q2

REPORT INFORMATION
  Report Type: Spontaneous
  Country: US (occurrence: US)
  Receive Date: 20250521
  Receipt Date: 20250521
  Transmission Date: 20250716
  Serious: Yes (Other)
  Sender: AMGEN
  Company Number: US-AMGEN-USASP2025098587

PATIENT
  Age: 36 Year
  Sex: Male

DRUGS (11)
  1. RITUXIMAB [Suspect]
     Active Substance: RITUXIMAB
     Indication: Diffuse large B-cell lymphoma stage IV
     Route: 065
  2. PREDNISONE [Suspect]
     Active Substance: PREDNISONE
     Indication: Diffuse large B-cell lymphoma stage IV
     Route: 065
  3. BICTEGRAVIR [Concomitant]
     Active Substance: BICTEGRAVIR
     Indication: HIV infection
  4. EMTRICITABINE [Concomitant]
     Active Substance: EMTRICITABINE
     Indication: HIV infection
  5. TENOFOVIR [Concomitant]
     Active Substance: TENOFOVIR
     Indication: HIV infection
  6. ETOPOSIDE [Concomitant]
     Active Substance: ETOPOSIDE
  7. ONCOVIN [Concomitant]
     Active Substance: VINCRISTINE SULFATE
  8. CYCLOPHOSPHAMIDE [Concomitant]
     Active Substance: CYCLOPHOSPHAMIDE
  9. DOXORUBICIN [Concomitant]
     Active Substance: DOXORUBICIN
  10. VINCRISTINE [Concomitant]
     Active Substance: VINCRISTINE
  11. EPIRUBICIN [Concomitant]
     Active Substance: EPIRUBICIN

REACTIONS (4)
  - Diffuse large B-cell lymphoma stage IV [Recovered/Resolved]
  - Mycobacterium avium complex infection [Not Recovered/Not Resolved]
  - Palpitations [Unknown]
  - Chest pain [Unknown]
